FAERS Safety Report 9356012 (Version 4)
Quarter: 2014Q2

REPORT INFORMATION
  Report Type: Report from Study
  Country: DE (occurrence: DE)
  Receive Date: 20130619
  Receipt Date: 20140616
  Transmission Date: 20141212
  Serious: Yes (Hospitalization)
  Sender: FDA-Public Use
  Company Number: DE-ROCHE-1235496

PATIENT
  Age: 73 Year
  Sex: Female
  Weight: 69 kg

DRUGS (6)
  1. TRASTUZUMAB [Suspect]
     Indication: HER-2 POSITIVE BREAST CANCER
     Route: 042
     Dates: start: 20130429
  2. TRASTUZUMAB [Suspect]
     Dosage: LAST DOSE PRIOR TO SAE WAS 23/MAY/2013
     Route: 042
  3. CYCLOPHOSPHAMIDE [Suspect]
     Indication: HER-2 POSITIVE BREAST CANCER
     Dosage: LAST DOSE PRIOR TO SAE WAS 08/APR/2013
     Route: 042
     Dates: start: 20130204
  4. EPIRUBICIN [Suspect]
     Indication: HER-2 POSITIVE BREAST CANCER
     Dosage: LAST DOSE PRIOR TO SAE WAS 08/APR/2013
     Route: 042
     Dates: start: 20130204
  5. PACLITAXEL [Suspect]
     Indication: HER-2 POSITIVE BREAST CANCER
     Dosage: LAST DOSE PRIOR TO SAE WAS 30/MAY/2013
     Route: 042
     Dates: start: 20130429
  6. PERTUZUMAB [Suspect]
     Indication: HER-2 POSITIVE BREAST CANCER
     Dosage: LAST DOSE PRIOR TO SAE WAS23/MAY/2013
     Route: 042
     Dates: start: 20130429

REACTIONS (1)
  - Venous thrombosis limb [Recovered/Resolved with Sequelae]
